FAERS Safety Report 8512031-0 (Version None)
Quarter: 2012Q3

REPORT INFORMATION
  Report Type: 
  Country: None (occurrence: None)
  Receive Date: 20120716
  Receipt Date: 20120706
  Transmission Date: 20120928
  Serious: Yes (Hospitalization, Disabling, Other)
  Sender: FDA-Public Use
  Company Number: US-BAYER-2011-083330

PATIENT
  Age: 28 Year
  Sex: Female
  Weight: 79.365 kg

DRUGS (11)
  1. YAZ [Suspect]
     Dosage: UNK
     Route: 048
     Dates: start: 20000101, end: 20040101
  2. VALTREX [Concomitant]
     Dosage: 500 MG, TAKE 1 TABLET TWICE DAILY FOR 5 DAYS
     Route: 048
     Dates: start: 20050810
  3. KEFLEX [Concomitant]
     Dosage: 500 MG, TAKE 1 CAPSULE 3 TIMES DAILY
     Route: 048
     Dates: start: 20050902
  4. FAMVIR [Concomitant]
     Dosage: UNK, DAILY FOR 7 DAYS
     Route: 048
     Dates: start: 20050910
  5. AMOXIL [Concomitant]
     Dosage: 500MG 3 TIMES DAILY
     Route: 048
     Dates: start: 20050710
  6. YASMIN [Suspect]
     Dosage: UNK
     Route: 048
     Dates: start: 20020901, end: 20050730
  7. HYDROCODONE BITARTRATE + ACETAMINOPHEN [Concomitant]
     Indication: PAIN
     Dosage: 5/500, TAKE 1 TO 2 TABLETS EVERY 6 HOURS AS NEEDED
     Route: 048
     Dates: start: 20050626, end: 20051028
  8. ZITHROMAX [Concomitant]
  9. VICODIN [Concomitant]
     Indication: MUSCLE SPASMS
     Dosage: 1 TO 2 THREE TIMES DAILY
     Route: 048
     Dates: start: 20031130, end: 20060524
  10. MAXALT [Concomitant]
     Indication: HEADACHE
     Dosage: 10 MG, PRN
     Route: 048
     Dates: start: 20051024
  11. ZANAFLEX [Concomitant]
     Dosage: 4 MG, TAKE 2 TABLETS THREE TIMES DAILY
     Route: 048
     Dates: start: 20050706, end: 20050826

REACTIONS (13)
  - DEEP VEIN THROMBOSIS [None]
  - PNEUMONIA [None]
  - PAIN [None]
  - IMMUNODEFICIENCY [None]
  - INJURY [None]
  - PULMONARY EMBOLISM [None]
  - DYSPNOEA [None]
  - EMOTIONAL DISTRESS [None]
  - DEPRESSION [None]
  - CHOLECYSTECTOMY [None]
  - GENERAL PHYSICAL HEALTH DETERIORATION [None]
  - ANXIETY [None]
  - ANHEDONIA [None]
